FAERS Safety Report 23644680 (Version 1)
Quarter: 2024Q1

REPORT INFORMATION
  Report Type: Spontaneous
  Country: US (occurrence: None)
  Receive Date: 20240318
  Receipt Date: 20240318
  Transmission Date: 20240410
  Serious: Yes (Hospitalization)
  Sender: FDA-Public Use
  Company Number: None

PATIENT
  Sex: Female

DRUGS (4)
  1. TACROLIMUS [Suspect]
     Active Substance: TACROLIMUS
     Indication: Renal transplant
     Dosage: FREQUENCY : TWICE A DAY;?
     Route: 048
     Dates: start: 202106
  2. TYVASO DPI MAINT KIT [Concomitant]
  3. ADEMPAS [Concomitant]
  4. MYCOPHENOLATE OFETIL [Concomitant]

REACTIONS (2)
  - Dyspnoea [None]
  - Blood pressure decreased [None]
